FAERS Safety Report 10351470 (Version 1)
Quarter: 2014Q3

REPORT INFORMATION
  Report Type: Spontaneous
  Country: GB (occurrence: GB)
  Receive Date: 20140730
  Receipt Date: 20140730
  Transmission Date: 20150326
  Serious: Yes (Other)
  Sender: FDA-Public Use
  Company Number: PHHY2014GB092343

PATIENT

DRUGS (2)
  1. MIRTAZAPINE. [Suspect]
     Active Substance: MIRTAZAPINE
     Indication: SLEEP DISORDER
     Dosage: 75 MG, (30MG MORNING AND 45 MG EVENING)
     Dates: start: 20140711, end: 20140721
  2. MIRTAZAPINE. [Suspect]
     Active Substance: MIRTAZAPINE
     Indication: DEMENTIA

REACTIONS (3)
  - Renal failure chronic [Unknown]
  - Overdose [Unknown]
  - Renal failure [Unknown]

NARRATIVE: CASE EVENT DATE: 20140711
